FAERS Safety Report 10897442 (Version 4)
Quarter: 2015Q3

REPORT INFORMATION
  Report Type: Spontaneous
  Country: US (occurrence: US)
  Receive Date: 20150309
  Receipt Date: 20150803
  Transmission Date: 20151125
  Serious: No
  Sender: FDA-Public Use
  Company Number: US-PFIZER INC-2015084747

PATIENT
  Age: 39 Year
  Sex: Female
  Weight: 113 kg

DRUGS (7)
  1. HYDROCHLOROTHIAZIDE/LOSARTAN [Concomitant]
     Dosage: UNK
  2. LYRICA [Suspect]
     Active Substance: PREGABALIN
     Indication: FIBROMYALGIA
     Dosage: 300 MG, 2X/DAY
     Dates: start: 2000, end: 2014
  3. VITAMIN D [Concomitant]
     Active Substance: CHOLECALCIFEROL
     Dosage: UNK
  4. LYRICA [Suspect]
     Active Substance: PREGABALIN
     Indication: RHEUMATOID ARTHRITIS
  5. TOPAMAX [Concomitant]
     Active Substance: TOPIRAMATE
     Dosage: UNK
  6. PLAQUENIL [Concomitant]
     Active Substance: HYDROXYCHLOROQUINE SULFATE
     Dosage: UNK
  7. PROTONIX [Concomitant]
     Active Substance: PANTOPRAZOLE SODIUM
     Dosage: UNK

REACTIONS (3)
  - Malaise [Unknown]
  - Peripheral swelling [Unknown]
  - Pain in extremity [Unknown]

NARRATIVE: CASE EVENT DATE: 201502
